FAERS Safety Report 25804160 (Version 1)
Quarter: 2025Q3

REPORT INFORMATION
  Report Type: Spontaneous
  Country: US (occurrence: US)
  Receive Date: 20250915
  Receipt Date: 20250915
  Transmission Date: 20251021
  Serious: No
  Sender: BIOGEN
  Company Number: US-BIOGEN-2024BI01261568

PATIENT
  Sex: Male

DRUGS (3)
  1. VUMERITY [Suspect]
     Active Substance: DIROXIMEL FUMARATE
     Indication: Multiple sclerosis
     Dosage: TAKE 2 CAPSULES BY MOUTH 2 (TWO) TIMES DAILY.
     Route: 050
  2. VITAMIN B12 [Concomitant]
     Active Substance: CYANOCOBALAMIN
     Route: 050
  3. VITAMIN D3 [Concomitant]
     Active Substance: CHOLECALCIFEROL
     Route: 050

REACTIONS (3)
  - Product dose omission in error [Unknown]
  - Product dose omission issue [Unknown]
  - Erythema [Unknown]
